FAERS Safety Report 9718350 (Version 1)
Quarter: 2013Q4

REPORT INFORMATION
  Report Type: Spontaneous
  Country: US (occurrence: US)
  Receive Date: 20131125
  Receipt Date: 20131125
  Transmission Date: 20140711
  Serious: No
  Sender: FDA-Public Use
  Company Number: US-VIVUS-2012V1000269

PATIENT
  Age: 53 Year
  Sex: Male
  Weight: 118.04 kg

DRUGS (5)
  1. QSYMIA 3.75MG/23MG [Suspect]
     Indication: WEIGHT
     Route: 048
     Dates: start: 2012
  2. NEXIUM [Concomitant]
     Indication: GASTROOESOPHAGEAL REFLUX DISEASE
     Route: 048
     Dates: start: 2003
  3. ACTOS [Concomitant]
     Indication: TYPE 2 DIABETES MELLITUS
     Route: 048
     Dates: start: 2003
  4. GLIMEPIRIDE [Concomitant]
     Indication: TYPE 2 DIABETES MELLITUS
     Route: 048
     Dates: start: 2003
  5. QUINAPRIL [Concomitant]
     Indication: HYPERTENSION
     Route: 048
     Dates: start: 2003

REACTIONS (5)
  - Feeling cold [Recovering/Resolving]
  - Abdominal pain [Unknown]
  - Hyperhidrosis [Recovering/Resolving]
  - Gastrooesophageal reflux disease [Recovering/Resolving]
  - Anxiety [Recovering/Resolving]
